FAERS Safety Report 18255135 (Version 22)
Quarter: 2025Q2

REPORT INFORMATION
  Report Type: Report from Study
  Country: US (occurrence: US)
  Receive Date: 20200911
  Receipt Date: 20250623
  Transmission Date: 20250717
  Serious: Yes (Hospitalization, Other)
  Sender: TAKEDA
  Company Number: US-SHIRE-US202029455

PATIENT
  Age: 72 Year
  Sex: Female
  Weight: 87 kg

DRUGS (47)
  1. HUMAN IMMUNOGLOBULIN G [Suspect]
     Active Substance: HUMAN IMMUNOGLOBULIN G
     Indication: Immunodeficiency common variable
     Dosage: 10 GRAM, 1/WEEK
  2. HUMAN IMMUNOGLOBULIN G [Suspect]
     Active Substance: HUMAN IMMUNOGLOBULIN G
     Dosage: 10 GRAM, 1/WEEK
     Dates: start: 20160728
  3. HUMAN IMMUNOGLOBULIN G [Suspect]
     Active Substance: HUMAN IMMUNOGLOBULIN G
     Dosage: 10 GRAM, 1/WEEK
     Dates: start: 20160729
  4. DIPHENHYDRAMINE [Concomitant]
     Active Substance: DIPHENHYDRAMINE
  5. KLONOPIN [Concomitant]
     Active Substance: CLONAZEPAM
  6. FUROSEMIDE [Concomitant]
     Active Substance: FUROSEMIDE
  7. EPINEPHRINE [Concomitant]
     Active Substance: EPINEPHRINE
  8. METOPROLOL TARTRATE [Concomitant]
     Active Substance: METOPROLOL TARTRATE
  9. LIDOCAINE\PRILOCAINE [Concomitant]
     Active Substance: LIDOCAINE\PRILOCAINE
  10. LEVOTHYROXINE SODIUM [Concomitant]
     Active Substance: LEVOTHYROXINE SODIUM
  11. SINGULAIR [Concomitant]
     Active Substance: MONTELUKAST SODIUM
  12. ZOFRAN [Concomitant]
     Active Substance: ONDANSETRON HYDROCHLORIDE
  13. METFORMIN HYDROCHLORIDE [Concomitant]
     Active Substance: METFORMIN HYDROCHLORIDE
  14. ONDANSETRON [Concomitant]
     Active Substance: ONDANSETRON
  15. NEXIUM [Concomitant]
     Active Substance: ESOMEPRAZOLE MAGNESIUM
  16. SIMVASTATIN [Concomitant]
     Active Substance: SIMVASTATIN
  17. HYDROXYZINE HYDROCHLORIDE [Concomitant]
     Active Substance: HYDROXYZINE HYDROCHLORIDE
  18. LINZESS [Concomitant]
     Active Substance: LINACLOTIDE
  19. PROAIR HFA [Concomitant]
     Active Substance: ALBUTEROL SULFATE
  20. PROAIR RESPICLICK [Concomitant]
     Active Substance: ALBUTEROL SULFATE
  21. TRAZODONE HCL [Concomitant]
     Active Substance: TRAZODONE HYDROCHLORIDE
  22. DIFLUCAN [Concomitant]
     Active Substance: FLUCONAZOLE
  23. GINGER [Concomitant]
     Active Substance: GINGER
  24. VIIBRYD [Concomitant]
     Active Substance: VILAZODONE HYDROCHLORIDE
  25. SYMBICORT [Concomitant]
     Active Substance: BUDESONIDE\FORMOTEROL FUMARATE DIHYDRATE
  26. IBUPROFEN [Concomitant]
     Active Substance: IBUPROFEN
  27. AZELASTINE [Concomitant]
     Active Substance: AZELASTINE
  28. CYCLOBENZAPRINE [Concomitant]
     Active Substance: CYCLOBENZAPRINE
  29. BENTYL [Concomitant]
     Active Substance: DICYCLOMINE HYDROCHLORIDE
  30. ABILIFY [Concomitant]
     Active Substance: ARIPIPRAZOLE
  31. METHIMAZOLE [Concomitant]
     Active Substance: METHIMAZOLE
  32. ULTRAM [Concomitant]
     Active Substance: TRAMADOL HYDROCHLORIDE
  33. STOOL SOFTENER (DOCUSATE) [Concomitant]
     Active Substance: DOCUSATE
  34. ZANTAC [Concomitant]
     Active Substance: RANITIDINE HYDROCHLORIDE
  35. LIDOCAINE [Concomitant]
     Active Substance: LIDOCAINE
  36. LOSARTAN POTASSIUM [Concomitant]
     Active Substance: LOSARTAN POTASSIUM
  37. GABAPENTIN [Concomitant]
     Active Substance: GABAPENTIN
  38. PROMETHAZINE [Concomitant]
     Active Substance: PROMETHAZINE HYDROCHLORIDE
  39. NEXLETOL [Concomitant]
     Active Substance: BEMPEDOIC ACID
  40. LEXAPRO [Concomitant]
     Active Substance: ESCITALOPRAM OXALATE
  41. TRULANCE [Concomitant]
     Active Substance: PLECANATIDE
  42. MIRTAZAPINE [Concomitant]
     Active Substance: MIRTAZAPINE
  43. PROMETHAZINE HYDROCHLORIDE [Concomitant]
     Active Substance: PROMETHAZINE HYDROCHLORIDE
  44. DIPHENHYDRAMINE HYDROCHLORIDE [Concomitant]
     Active Substance: DIPHENHYDRAMINE HYDROCHLORIDE
  45. VITAMIN B [Concomitant]
     Active Substance: VITAMIN B
  46. VENTOLIN [Concomitant]
     Active Substance: ALBUTEROL SULFATE
  47. LUBIPROSTONE [Concomitant]
     Active Substance: LUBIPROSTONE

REACTIONS (25)
  - Clostridium difficile infection [Recovered/Resolved]
  - Gastric polyps [Unknown]
  - Humerus fracture [Unknown]
  - Gastritis [Unknown]
  - Haemorrhage [Unknown]
  - Haemoglobin decreased [Unknown]
  - Breast cancer [Unknown]
  - Colitis [Recovering/Resolving]
  - Impaired gastric emptying [Unknown]
  - Diverticulitis [Unknown]
  - Product dose omission in error [Unknown]
  - Inappropriate schedule of product administration [Unknown]
  - Upper limb fracture [Unknown]
  - Gastrointestinal infection [Unknown]
  - Fall [Unknown]
  - Sinusitis [Unknown]
  - Malaise [Unknown]
  - Infusion site urticaria [Unknown]
  - Arthralgia [Unknown]
  - Back pain [Unknown]
  - Infusion site erythema [Unknown]
  - Asthenia [Not Recovered/Not Resolved]
  - Pain [Unknown]
  - Infusion site pruritus [Unknown]
  - Nausea [Unknown]

NARRATIVE: CASE EVENT DATE: 20230828
